FAERS Safety Report 12596382 (Version 1)
Quarter: 2016Q3

REPORT INFORMATION
  Report Type: Report from Study
  Country: BE (occurrence: BE)
  Receive Date: 20160726
  Receipt Date: 20160726
  Transmission Date: 20161109
  Serious: Yes (Hospitalization, Other)
  Sender: FDA-Public Use
  Company Number: PHHO2015BE017057

PATIENT
  Age: 80 Year
  Sex: Male
  Weight: 68 kg

DRUGS (3)
  1. COMPARATOR AZACITIDINE [Suspect]
     Active Substance: AZACITIDINE
     Indication: MYELODYSPLASTIC SYNDROME
     Dosage: 75 MG/M2, CYCLIC
     Route: 058
     Dates: start: 20141223
  2. ELTROMBOPAG [Suspect]
     Active Substance: ELTROMBOPAG
     Indication: MYELODYSPLASTIC SYNDROME
     Dosage: 200 MG, QD
     Route: 048
     Dates: start: 20141223
  3. ELTROMBOPAG [Suspect]
     Active Substance: ELTROMBOPAG
     Dosage: UNK
     Route: 048

REACTIONS (1)
  - Myelofibrosis [Recovered/Resolved with Sequelae]

NARRATIVE: CASE EVENT DATE: 20150121
